FAERS Safety Report 25023003 (Version 2)
Quarter: 2025Q2

REPORT INFORMATION
  Report Type: Report from Study
  Country: US (occurrence: US)
  Receive Date: 20250228
  Receipt Date: 20250401
  Transmission Date: 20250717
  Serious: Yes (Death, Other)
  Sender: IPSEN
  Company Number: US-IPSEN Group, Research and Development-2025-04657

PATIENT
  Age: 59 Year
  Sex: Female

DRUGS (1)
  1. ONIVYDE [Suspect]
     Active Substance: IRINOTECAN HYDROCHLORIDE
     Indication: Pancreatic carcinoma
     Dosage: EVERY 21 DAYS
     Route: 042

REACTIONS (2)
  - Death [Fatal]
  - Off label use [Unknown]

NARRATIVE: CASE EVENT DATE: 20250222
